FAERS Safety Report 12443023 (Version 2)
Quarter: 2016Q2

REPORT INFORMATION
  Report Type: Spontaneous
  Country: DK (occurrence: DK)
  Receive Date: 20160607
  Receipt Date: 20160623
  Transmission Date: 20160815
  Serious: Yes (Other)
  Sender: FDA-Public Use
  Company Number: DK-GLAXOSMITHKLINE-DK2016GSK079780

PATIENT
  Sex: Male

DRUGS (2)
  1. VOLTAREN [Suspect]
     Active Substance: DICLOFENAC SODIUM
     Indication: BONE PAIN
  2. VOLTAREN [Suspect]
     Active Substance: DICLOFENAC SODIUM
     Indication: ARTHRALGIA
     Dosage: UNK
     Dates: start: 20150925, end: 20151003

REACTIONS (21)
  - Hypersensitivity [Unknown]
  - Pruritus [Unknown]
  - Application site rash [Unknown]
  - Ligament sprain [Unknown]
  - Brain neoplasm [Unknown]
  - Eczema [Recovering/Resolving]
  - Visual impairment [Unknown]
  - Rash [Recovering/Resolving]
  - Paraesthesia [Unknown]
  - Musculoskeletal pain [Unknown]
  - Fatigue [Unknown]
  - Insomnia [Not Recovered/Not Resolved]
  - Pain in extremity [Unknown]
  - Wound [Unknown]
  - Muscle tightness [Unknown]
  - Skin swelling [Recovering/Resolving]
  - Groin pain [Unknown]
  - Dysphonia [Unknown]
  - Hyporeflexia [Unknown]
  - Dysaesthesia [Unknown]
  - Back pain [Unknown]

NARRATIVE: CASE EVENT DATE: 20151003
